FAERS Safety Report 6751461-4 (Version None)
Quarter: 2010Q2

REPORT INFORMATION
  Report Type: 
  Country: None (occurrence: None)
  Receive Date: 20100528
  Receipt Date: 20100517
  Transmission Date: 20101027
  Serious: Yes (Hospitalization)
  Sender: FDA-Public Use
  Company Number: 1-22686661

PATIENT
  Age: 21 Year

DRUGS (2)
  1. TRAMADOL HCL [Suspect]
  2. PENTAZOCINE [Suspect]

REACTIONS (1)
  - PORPHYRIA ACUTE [None]
